FAERS Safety Report 8971314 (Version 2)
Quarter: 2013Q1

REPORT INFORMATION
  Report Type: Spontaneous
  Country: US (occurrence: US)
  Receive Date: 20121218
  Receipt Date: 20130205
  Transmission Date: 20140127
  Serious: Yes (Hospitalization)
  Sender: FDA-Public Use
  Company Number: US-ELI_LILLY_AND_COMPANY-US201202004410

PATIENT
  Age: 55 Year
  Sex: Female
  Weight: 62.13 kg

DRUGS (1)
  1. FORTEO [Suspect]
     Indication: SENILE OSTEOPOROSIS
     Dosage: 20 MG, QD
     Route: 058
     Dates: start: 201111

REACTIONS (3)
  - Dehydration [Recovered/Resolved]
  - Fall [Recovered/Resolved]
  - Injection site pain [Unknown]
